FAERS Safety Report 24852360 (Version 2)
Quarter: 2025Q1

REPORT INFORMATION
  Report Type: Spontaneous
  Country: US (occurrence: US)
  Receive Date: 20250116
  Receipt Date: 20250222
  Transmission Date: 20250409
  Serious: No
  Sender: SANOFI AVENTIS
  Company Number: US-SA-2025SA013236

PATIENT
  Age: 44 Year
  Sex: Female

DRUGS (1)
  1. DUPIXENT [Suspect]
     Active Substance: DUPILUMAB
     Indication: Dermatitis atopic
     Dosage: 300 MG, QOW
     Route: 058

REACTIONS (13)
  - Dry skin [Not Recovered/Not Resolved]
  - Sleep disorder due to a general medical condition [Not Recovered/Not Resolved]
  - Visual impairment [Unknown]
  - Skin fissures [Not Recovered/Not Resolved]
  - Injection site urticaria [Recovered/Resolved]
  - Injection site mass [Unknown]
  - Injection site discolouration [Unknown]
  - Pruritus [Not Recovered/Not Resolved]
  - Skin exfoliation [Not Recovered/Not Resolved]
  - Injection site bruising [Unknown]
  - Dermatitis atopic [Not Recovered/Not Resolved]
  - Therapeutic response decreased [Unknown]
  - Injection site reaction [Unknown]
